FAERS Safety Report 8444854-0 (Version None)
Quarter: 2012Q2

REPORT INFORMATION
  Report Type: 
  Country: None (occurrence: None)
  Receive Date: 20120618
  Receipt Date: 20120613
  Transmission Date: 20120825
  Serious: Yes (Death, Life-Threatening, Other)
  Sender: FDA-Public Use
  Company Number: PHHY2011DE46082

PATIENT
  Age: 60 Year
  Sex: Male
  Weight: 95 kg

DRUGS (6)
  1. LOPERAMIDE [Concomitant]
  2. BETA BLOCKING AGENTS [Concomitant]
     Indication: HYPERTENSION
  3. FUROSEMIDE [Concomitant]
  4. ACE INHIBITOR NOS [Concomitant]
     Indication: HYPERTENSION
  5. CALCIUM CHANNEL BLOCKERS [Concomitant]
     Indication: HYPERTENSION
  6. AFINITOR [Suspect]
     Indication: RENAL CELL CARCINOMA
     Dosage: 10 MG/D
     Route: 048
     Dates: start: 20110204, end: 20110922

REACTIONS (7)
  - NECROTISING FASCIITIS [None]
  - GOUT [None]
  - DRUG INTOLERANCE [None]
  - NEOPLASM [None]
  - PAIN IN EXTREMITY [None]
  - DISCOMFORT [None]
  - HYPERURICAEMIA [None]
